FAERS Safety Report 14330648 (Version 1)
Quarter: 2017Q4

REPORT INFORMATION
  Report Type: Spontaneous
  Country: FR (occurrence: FR)
  Receive Date: 20171228
  Receipt Date: 20171228
  Transmission Date: 20180321
  Serious: Yes (Other)
  Sender: FDA-Public Use
  Company Number: FR-MERCK KGAA-2037851

PATIENT
  Age: 46 Year
  Sex: Female
  Weight: 75 kg

DRUGS (1)
  1. NOVOTHYROX [Suspect]
     Active Substance: LEVOTHYROXINE SODIUM
     Indication: HYPOTHYROIDISM
     Route: 048
     Dates: start: 201704

REACTIONS (9)
  - Amnesia [Recovering/Resolving]
  - Headache [Recovering/Resolving]
  - Weight increased [Recovering/Resolving]
  - Myalgia [Recovering/Resolving]
  - Mood swings [Recovering/Resolving]
  - Vertigo [Recovering/Resolving]
  - Arthralgia [Recovering/Resolving]
  - Fatigue [Recovering/Resolving]
  - Insomnia [Recovering/Resolving]

NARRATIVE: CASE EVENT DATE: 201705
